FAERS Safety Report 7868723-X (Version None)
Quarter: 2011Q4

REPORT INFORMATION
  Report Type: 
  Country: None (occurrence: None)
  Receive Date: 20111028
  Receipt Date: 20101217
  Transmission Date: 20120403
  Serious: No
  Sender: FDA-Public Use
  Company Number: US-AMGEN-USASP2010010037

PATIENT
  Age: 47 Year
  Sex: Male
  Weight: 91.156 kg

DRUGS (3)
  1. OMEGA 3                            /00931501/ [Concomitant]
  2. MULTIVITAMIN                       /00097801/ [Concomitant]
  3. ENBREL [Suspect]
     Indication: PRODUCT USED FOR UNKNOWN INDICATION
     Dosage: 50 MG, QWK

REACTIONS (1)
  - NASOPHARYNGITIS [None]
